FAERS Safety Report 24697373 (Version 1)
Quarter: 2024Q4

REPORT INFORMATION
  Report Type: Spontaneous
  Country: US (occurrence: US)
  Receive Date: 20241204
  Receipt Date: 20241204
  Transmission Date: 20250115
  Serious: Yes (Other)
  Sender: SANOFI AVENTIS
  Company Number: US-SA-2024SA357034

PATIENT
  Age: 66 Year
  Sex: Male

DRUGS (4)
  1. DUPIXENT [Suspect]
     Active Substance: DUPILUMAB
     Indication: Asthma
     Dosage: 300 MG, QOW
     Route: 058
     Dates: start: 202406
  2. GABAPENTIN [Concomitant]
     Active Substance: GABAPENTIN
     Indication: Nerve injury
  3. ROBAXIN [Concomitant]
     Active Substance: METHOCARBAMOL
     Indication: Nerve injury
  4. ROBAXIN [Concomitant]
     Active Substance: METHOCARBAMOL
     Indication: Intervertebral disc disorder

REACTIONS (3)
  - Intra-abdominal haemorrhage [Unknown]
  - Abdominal pain lower [Unknown]
  - Abdominal distension [Unknown]
